FAERS Safety Report 9019468 (Version 2)
Quarter: 2013Q1

REPORT INFORMATION
  Report Type: Spontaneous
  Country: CN (occurrence: CN)
  Receive Date: 20130118
  Receipt Date: 20130207
  Transmission Date: 20140127
  Serious: Yes (Death, Hospitalization, Other)
  Sender: FDA-Public Use
  Company Number: CN-EISAI INC-E2020-11859-SPO-CN

PATIENT
  Age: 75 Year
  Sex: Female

DRUGS (2)
  1. ARICEPT [Suspect]
     Indication: DEMENTIA ALZHEIMER^S TYPE
     Route: 048
     Dates: start: 201206, end: 20121225
  2. ARICEPT [Suspect]
     Route: 048
     Dates: start: 20121226, end: 20130101

REACTIONS (3)
  - Ventricular fibrillation [Fatal]
  - Depressed level of consciousness [Fatal]
  - Urinary incontinence [Unknown]
